FAERS Safety Report 11551820 (Version 1)
Quarter: 2015Q3

REPORT INFORMATION
  Report Type: Spontaneous
  Country: US (occurrence: US)
  Receive Date: 20150903
  Receipt Date: 20150903
  Transmission Date: 20151125
  Serious: No
  Sender: FDA-Public Use
  Company Number: US-ELI_LILLY_AND_COMPANY-US201005002918

PATIENT
  Sex: Male

DRUGS (4)
  1. LANTUS [Concomitant]
     Active Substance: INSULIN GLARGINE
  2. HUMALOG [Suspect]
     Active Substance: INSULIN LISPRO
     Dosage: 25 U, OTHER
  3. HUMALOG [Suspect]
     Active Substance: INSULIN LISPRO
     Dosage: 14 U, UNK
     Dates: start: 20100506, end: 20100506
  4. NOVOLOG [Concomitant]
     Active Substance: INSULIN ASPART

REACTIONS (3)
  - Incorrect dose administered [Unknown]
  - Drug dispensing error [Recovered/Resolved]
  - Incorrect drug dosage form administered [Unknown]

NARRATIVE: CASE EVENT DATE: 20100505
